FAERS Safety Report 4410933-8 (Version None)
Quarter: 2004Q3

REPORT INFORMATION
  Report Type: 
  Country: None (occurrence: None)
  Receive Date: 20040726
  Receipt Date: 20040720
  Transmission Date: 20050211
  Serious: Yes (Life-Threatening, Hospitalization, Other)
  Sender: FDA-Public Use
  Company Number: HQWYE132015JUL04

PATIENT
  Age: 16 Year
  Sex: Female
  Weight: 58 kg

DRUGS (4)
  1. RAPAMUNE [Suspect]
     Indication: PROPHYLAXIS AGAINST TRANSPLANT REJECTION
     Dosage: SEE IMAGE
     Dates: start: 20040128, end: 20040716
  2. RAPAMUNE [Suspect]
     Indication: PROPHYLAXIS AGAINST TRANSPLANT REJECTION
     Dosage: SEE IMAGE
     Dates: start: 20040719
  3. NEORAL [Suspect]
     Indication: IMMUNOSUPPRESSANT DRUG THERAPY
     Dosage: SEE IMAGE
     Dates: end: 20040701
  4. NEORAL [Suspect]
     Indication: IMMUNOSUPPRESSANT DRUG THERAPY
     Dosage: SEE IMAGE
     Dates: start: 20040701

REACTIONS (16)
  - ANAEMIA [None]
  - ASTHENIA [None]
  - BLOOD CREATININE INCREASED [None]
  - BLOOD UREA INCREASED [None]
  - DRUG LEVEL DECREASED [None]
  - DRUG TOXICITY [None]
  - HAEMOGLOBIN URINE [None]
  - HEART RATE INCREASED [None]
  - PYELONEPHRITIS ACUTE [None]
  - PYREXIA [None]
  - RED BLOOD CELLS URINE [None]
  - RENAL TUBULAR NECROSIS [None]
  - RESPIRATORY RATE INCREASED [None]
  - TRANSPLANT FAILURE [None]
  - URINARY TRACT INFECTION [None]
  - WHITE BLOOD CELLS URINE [None]
